FAERS Safety Report 20911118 (Version 1)
Quarter: 2022Q2

REPORT INFORMATION
  Report Type: Spontaneous
  Country: US (occurrence: None)
  Receive Date: 20220602
  Receipt Date: 20220602
  Transmission Date: 20220721
  Serious: No
  Sender: FDA-Public Use
  Company Number: None

PATIENT
  Age: 68 Year
  Sex: Female
  Weight: 60.75 kg

DRUGS (5)
  1. PAXLOVID [Suspect]
     Active Substance: NIRMATRELVIR\RITONAVIR
     Indication: COVID-19
     Dates: start: 20220518, end: 20220523
  2. Moderna covid shot(booster) [Concomitant]
  3. VITAMIN D3 [Concomitant]
     Active Substance: CHOLECALCIFEROL
  4. LUTEIN [Concomitant]
     Active Substance: LUTEIN
  5. ZEAXANTHIN [Concomitant]
     Active Substance: ZEAXANTHIN

REACTIONS (3)
  - COVID-19 [None]
  - Rebound effect [None]
  - Condition aggravated [None]
